FAERS Safety Report 11719152 (Version 1)
Quarter: 2015Q4

REPORT INFORMATION
  Report Type: Spontaneous
  Country: US (occurrence: None)
  Receive Date: 20151109
  Receipt Date: 20151109
  Transmission Date: 20160304
  Serious: No
  Sender: FDA-Public Use
  Company Number: None

PATIENT

DRUGS (1)
  1. BAXTER .9% NACL SOLUTION 100ML [Suspect]
     Active Substance: SODIUM CHLORIDE
     Dates: start: 20151031, end: 20151031

REACTIONS (2)
  - Drug administration error [None]
  - Product barcode issue [None]

NARRATIVE: CASE EVENT DATE: 20151031
